FAERS Safety Report 15590528 (Version 1)
Quarter: 2018Q4

REPORT INFORMATION
  Report Type: Spontaneous
  Country: SE (occurrence: SE)
  Receive Date: 20181106
  Receipt Date: 20181106
  Transmission Date: 20190205
  Serious: Yes (Death)
  Sender: FDA-Public Use
  Company Number: SE-BAYER-2018-199780

PATIENT
  Age: 86 Year
  Sex: Male

DRUGS (5)
  1. HIPREX [Concomitant]
     Active Substance: METHENAMINE HIPPURATE
  2. LEVAXIN [Concomitant]
     Active Substance: LEVOTHYROXINE SODIUM
  3. EMGESAN [Concomitant]
     Active Substance: MAGNESIUM HYDROXIDE
  4. TRIPTORELIN EMBONATE [Concomitant]
     Active Substance: TRIPTORELIN PAMOATE
  5. XOFIGO [Suspect]
     Active Substance: RADIUM RA-223 DICHLORIDE
     Indication: HORMONE-REFRACTORY PROSTATE CANCER
     Route: 042

REACTIONS (1)
  - Acute myeloid leukaemia [Fatal]

NARRATIVE: CASE EVENT DATE: 20180727
